FAERS Safety Report 7281863-1 (Version None)
Quarter: 2011Q1

REPORT INFORMATION
  Report Type: 
  Country: None (occurrence: None)
  Receive Date: 20110208
  Receipt Date: 20110131
  Transmission Date: 20110831
  Serious: Yes (Other)
  Sender: FDA-Public Use
  Company Number: US-GENENTECH-310183

PATIENT
  Sex: Female
  Weight: 80.726 kg

DRUGS (3)
  1. RITUXAN [Suspect]
     Indication: IDIOPATHIC THROMBOCYTOPENIC PURPURA
     Dosage: 375 MG/M2, 1/WEEK
     Route: 042
     Dates: start: 20070717
  2. CELLCEPT [Concomitant]
     Indication: PRODUCT USED FOR UNKNOWN INDICATION
     Dosage: 2500 MG, QD
     Dates: start: 20090109
  3. RITUXAN [Suspect]
     Dosage: UNK
     Dates: start: 20080101, end: 20080101

REACTIONS (1)
  - LYMPHOPROLIFERATIVE DISORDER [None]
